FAERS Safety Report 14901259 (Version 1)
Quarter: 2018Q2

REPORT INFORMATION
  Report Type: Spontaneous
  Country: US (occurrence: US)
  Receive Date: 20180516
  Receipt Date: 20180516
  Transmission Date: 20180711
  Serious: No
  Sender: FDA-Public Use
  Company Number: US-BAYER-2018-093805

PATIENT
  Sex: Female

DRUGS (2)
  1. MIRENA [Suspect]
     Active Substance: LEVONORGESTREL
     Indication: GENITAL HAEMORRHAGE
     Dosage: 20 MCG/24HR, CONT
     Route: 015
     Dates: start: 201608
  2. MIRENA [Suspect]
     Active Substance: LEVONORGESTREL
     Indication: GENITAL HAEMORRHAGE

REACTIONS (5)
  - Vaginal haemorrhage [Not Recovered/Not Resolved]
  - Vaginal haemorrhage [None]
  - Abdominal pain lower [Not Recovered/Not Resolved]
  - Product use in unapproved indication [None]
  - Off label use [None]

NARRATIVE: CASE EVENT DATE: 201608
